FAERS Safety Report 10040888 (Version 1)
Quarter: 2014Q1

REPORT INFORMATION
  Report Type: Spontaneous
  Country: US (occurrence: US)
  Receive Date: 20140327
  Receipt Date: 20140327
  Transmission Date: 20141002
  Serious: No
  Sender: FDA-Public Use
  Company Number: US-PFIZER INC-2014082442

PATIENT
  Age: 45 Year
  Sex: Male
  Weight: 102 kg

DRUGS (15)
  1. VIAGRA [Suspect]
     Indication: ERECTILE DYSFUNCTION
     Dosage: 50 MG, UNK
  2. VIAGRA [Suspect]
     Dosage: 100 MG, AS NEEDED (PRN)
     Route: 048
  3. PRAVASTATIN [Concomitant]
     Dosage: UNK
  4. HYDROCHLOORTHIAZIDE [Concomitant]
     Dosage: 1 DF, (1 ORAL)
     Route: 048
  5. DIGOXIN [Concomitant]
     Dosage: 1 DF, (1 ORAL)
     Route: 048
  6. WARFARIN [Concomitant]
     Dosage: UNK
  7. HYDROCODONE [Concomitant]
     Dosage: UNK
  8. LEVETIRACETAM [Concomitant]
     Dosage: UNK
     Route: 048
  9. AMIODARONE [Concomitant]
     Dosage: UNK (1)
  10. LISINOPRIL [Concomitant]
     Dosage: 1 DF, (1 ORAL)
     Route: 048
  11. LABETALOL [Concomitant]
     Dosage: UNK
  12. WARFARIN SODIUM [Concomitant]
     Dosage: 1 DF, (1 ORAL)
     Route: 048
  13. LABETALOL HYDROCHLORIDE [Concomitant]
     Dosage: UNK
  14. PRAVASTATIN SODIUM [Concomitant]
     Dosage: UNK
     Route: 048
  15. AMIODARONE HYDROCHLORIDE [Concomitant]
     Dosage: 1 DF, (1 ORAL)
     Route: 048

REACTIONS (1)
  - Drug ineffective [Unknown]
